FAERS Safety Report 8912646 (Version 2)
Quarter: 2012Q4

REPORT INFORMATION
  Report Type: 
  Country: US (occurrence: US)
  Receive Date: 20121115
  Receipt Date: 20121126
  Transmission Date: 20130627
  Serious: Yes (Hospitalization)
  Sender: FDA-Public Use
  Company Number: US-UCBSA-070794

PATIENT
  Age: 56 Year
  Sex: Female

DRUGS (20)
  1. CIMZIA [Suspect]
     Indication: CROHN^S DISEASE
     Dates: start: 20121001
  2. FOLIC ACID [Concomitant]
     Dosage: DAILY DOSE-1 MG
  3. METOPROLOL [Concomitant]
     Indication: BLOOD PRESSURE
  4. NARATRIPTAN [Concomitant]
     Indication: MIGRAINE
     Dosage: 2.5 MG EVERY HOURS
  5. PANTOPRAZOLE [Concomitant]
     Indication: HYPERCHLORHYDRIA
  6. VIT D [Concomitant]
  7. CYMBALTA [Concomitant]
     Indication: DEPRESSION
     Dosage: DAILY DOSE-60 MG
  8. AMITRIPTYLINE [Concomitant]
     Indication: DEPRESSION
     Dosage: DAILY DOSE-10 MG
  9. BUDESONIDE [Concomitant]
     Indication: ANTIINFLAMMATORY THERAPY
     Dosage: 3 MG CAPSULE: 2 CAPS DAILY
  10. CA ACETATE [Concomitant]
     Indication: SUPPLEMENTATION THERAPY
     Dosage: 667
  11. CLONAZEPAM [Concomitant]
     Indication: ANXIETY
     Dosage: 0.5 MG AT NIGHT
  12. CYANOCOBALAMIN [Concomitant]
     Route: 030
  13. DIPHENOXYLATE/ATROPINE [Concomitant]
     Indication: DIARRHOEA
     Dosage: 1 TABLET 2 TIMES DAILY
  14. FLORASTOR [Concomitant]
     Indication: PROBIOTIC THERAPY
  15. METHYLTREXATE [Concomitant]
     Dosage: 25 MG/ML
  16. ONDANSETRON [Concomitant]
     Indication: NAUSEA
     Dosage: 4 MG 3 TIMES DAILY
  17. ONDANSETRON [Concomitant]
     Indication: VOMITING
     Dosage: 4 MG 3 TIMES DAILY
  18. VANCOMYCIN [Concomitant]
     Indication: ANTIBIOTIC THERAPY
  19. VIT D3 [Concomitant]
     Dosage: 3 CAPSULES
  20. WELCHOL [Concomitant]
     Indication: BLOOD CHOLESTEROL

REACTIONS (2)
  - Nephrolithiasis [Not Recovered/Not Resolved]
  - Kidney infection [Unknown]
